FAERS Safety Report 8471677-9 (Version None)
Quarter: 2012Q2

REPORT INFORMATION
  Report Type: 
  Country: None (occurrence: None)
  Receive Date: 20120627
  Receipt Date: 20120620
  Transmission Date: 20120825
  Serious: Yes (Hospitalization)
  Sender: FDA-Public Use
  Company Number: US-GLAXOSMITHKLINE-A0875829A

PATIENT
  Age: 62 Year
  Sex: Male
  Weight: 84.1 kg

DRUGS (6)
  1. ATENOLOL [Concomitant]
  2. EZETIMIBE/SIMVASTATIN [Concomitant]
  3. DILTIAZEM HYDROCHOLORIDE [Concomitant]
  4. GLYBURIDE AND METFORMIN HYDROCHLORIDE [Concomitant]
  5. AVANDIA [Suspect]
     Indication: DIABETES MELLITUS
     Dosage: 8MG PER DAY
     Route: 048
     Dates: start: 20060301, end: 20070601
  6. LISINOPRIL [Concomitant]

REACTIONS (5)
  - RENAL IMPAIRMENT [None]
  - ACUTE CORONARY SYNDROME [None]
  - PULMONARY OEDEMA [None]
  - ACUTE MYOCARDIAL INFARCTION [None]
  - CARDIAC FAILURE CONGESTIVE [None]
